FAERS Safety Report 24379163 (Version 4)
Quarter: 2025Q2

REPORT INFORMATION
  Report Type: Report from Study
  Country: JP (occurrence: JP)
  Receive Date: 20240930
  Receipt Date: 20250516
  Transmission Date: 20250717
  Serious: Yes (Hospitalization)
  Sender: BIOGEN
  Company Number: JP-BIOGEN-2024BI01279964

PATIENT
  Age: 72 Year
  Sex: Male

DRUGS (7)
  1. SPINRAZA [Suspect]
     Active Substance: NUSINERSEN
     Indication: Spinal muscular atrophy
     Route: 050
     Dates: start: 20200414
  2. SPINRAZA [Suspect]
     Active Substance: NUSINERSEN
     Route: 050
  3. FAMOTIDINE [Concomitant]
     Active Substance: FAMOTIDINE
     Indication: Prophylaxis
     Route: 050
     Dates: start: 20240816
  4. NAFTOPIDIL [Concomitant]
     Active Substance: NAFTOPIDIL
     Indication: Benign prostatic hyperplasia
     Route: 050
  5. XYLOCAINE [Concomitant]
     Active Substance: LIDOCAINE HYDROCHLORIDE
     Indication: Anaesthesia procedure
     Route: 050
  6. ASPIRIN [Concomitant]
     Active Substance: ASPIRIN
     Indication: Prophylaxis
     Route: 050
     Dates: start: 20230406
  7. LANSOPRAZOLE [Concomitant]
     Active Substance: LANSOPRAZOLE
     Indication: Prophylaxis
     Route: 050
     Dates: end: 20240815

REACTIONS (4)
  - Pleural thickening [Unknown]
  - Pleural effusion [Unknown]
  - Aspergillus test positive [Unknown]
  - Iron deficiency anaemia [Not Recovered/Not Resolved]

NARRATIVE: CASE EVENT DATE: 20240801
